FAERS Safety Report 23624048 (Version 2)
Quarter: 2024Q2

REPORT INFORMATION
  Report Type: Report from Study
  Country: CA (occurrence: CA)
  Receive Date: 20240312
  Receipt Date: 20240521
  Transmission Date: 20240716
  Serious: Yes (Death, Other)
  Sender: FDA-Public Use
  Company Number: CA-HLS-202400710

PATIENT
  Age: 39 Year
  Sex: Male

DRUGS (1)
  1. CLOZARIL [Suspect]
     Active Substance: CLOZAPINE
     Indication: Schizophrenia
     Dosage: 150 MG QHS
     Route: 048
     Dates: start: 20220502

REACTIONS (3)
  - Anxiety [Fatal]
  - Dyskinesia [Fatal]
  - Completed suicide [Fatal]

NARRATIVE: CASE EVENT DATE: 20240215
